FAERS Safety Report 7364472-5 (Version None)
Quarter: 2011Q1

REPORT INFORMATION
  Report Type: 
  Country: None (occurrence: None)
  Receive Date: 20110321
  Receipt Date: 20110310
  Transmission Date: 20110831
  Serious: Yes (Other)
  Sender: FDA-Public Use
  Company Number: BR-JNJFOC-20110306243

PATIENT
  Age: 38 Year
  Sex: Female

DRUGS (5)
  1. CLOBAZAM [Suspect]
     Indication: PARTIAL SEIZURES
     Route: 065
  2. TOPIRAMATE [Suspect]
     Indication: PARTIAL SEIZURES
     Route: 048
  3. TOPIRAMATE [Suspect]
     Route: 048
  4. TOPIRAMATE [Suspect]
     Route: 048
  5. CARBAMAZEPINE [Suspect]
     Indication: PARTIAL SEIZURES
     Route: 065

REACTIONS (3)
  - PSYCHOMOTOR HYPERACTIVITY [None]
  - AGGRESSION [None]
  - INSOMNIA [None]
